FAERS Safety Report 7139507-5 (Version None)
Quarter: 2010Q4

REPORT INFORMATION
  Report Type: 
  Country: None (occurrence: None)
  Receive Date: 20101206
  Receipt Date: 20101124
  Transmission Date: 20110411
  Serious: Yes (Other)
  Sender: FDA-Public Use
  Company Number: US-WATSON-2010-15369

PATIENT
  Sex: Female
  Weight: 70.748 kg

DRUGS (3)
  1. CIPROFLOXACIN HCL [Suspect]
     Indication: URINARY TRACT INFECTION
     Dosage: 500 MG, BID FOR 10 DAYS
     Route: 048
     Dates: start: 20100720, end: 20100725
  2. PROMETHAZINE [Suspect]
     Indication: NAUSEA
     Dosage: 25 MG, Q8H PRN
     Route: 048
     Dates: start: 20100720, end: 20100721
  3. HYDROCODONE BITARTRATE AND ACETAMINOPHEN [Suspect]
     Indication: PAIN
     Dosage: 1 TABLET, Q6H PRN
     Route: 048
     Dates: start: 20100720, end: 20100721

REACTIONS (8)
  - ABDOMINAL PAIN [None]
  - CONTUSION [None]
  - FALL [None]
  - FEELING ABNORMAL [None]
  - GAIT DISTURBANCE [None]
  - GASTRIC ULCER [None]
  - HYPOAESTHESIA [None]
  - SENSORY LOSS [None]
